FAERS Safety Report 12608355 (Version 1)
Quarter: 2016Q3

REPORT INFORMATION
  Report Type: Report from Study
  Country: US (occurrence: US)
  Receive Date: 20160729
  Receipt Date: 20160729
  Transmission Date: 20161109
  Serious: Yes (Other)
  Sender: FDA-Public Use
  Company Number: US-ABBVIE-16K-163-1685539-00

PATIENT
  Age: 88 Year
  Sex: Male

DRUGS (7)
  1. BETAMETHASONE ACETATE [Concomitant]
     Active Substance: BETAMETHASONE ACETATE
     Indication: PRODUCT USED FOR UNKNOWN INDICATION
  2. METFORMIN [Concomitant]
     Active Substance: METFORMIN HYDROCHLORIDE
     Indication: PRODUCT USED FOR UNKNOWN INDICATION
  3. SIMVASTATIN. [Concomitant]
     Active Substance: SIMVASTATIN
     Indication: PRODUCT USED FOR UNKNOWN INDICATION
  4. GLIPIZIDE. [Concomitant]
     Active Substance: GLIPIZIDE
     Indication: PRODUCT USED FOR UNKNOWN INDICATION
  5. POTASSIUM [Concomitant]
     Active Substance: POTASSIUM
     Indication: PRODUCT USED FOR UNKNOWN INDICATION
  6. HUMIRA [Suspect]
     Active Substance: ADALIMUMAB
     Indication: PSORIASIS
     Route: 058
     Dates: start: 20160610
  7. LOSARTAN. [Concomitant]
     Active Substance: LOSARTAN
     Indication: PRODUCT USED FOR UNKNOWN INDICATION

REACTIONS (2)
  - Cataract operation complication [Not Recovered/Not Resolved]
  - Cataract [Unknown]

NARRATIVE: CASE EVENT DATE: 201606
